FAERS Safety Report 4701959-5 (Version None)
Quarter: 2005Q2

REPORT INFORMATION
  Report Type: 
  Country: None (occurrence: None)
  Receive Date: 20050628
  Receipt Date: 20050606
  Transmission Date: 20051028
  Serious: Yes (Other)
  Sender: FDA-Public Use
  Company Number: DE-MERCK-0506DEU00050

PATIENT
  Age: 5 Year
  Sex: Female
  Weight: 23 kg

DRUGS (3)
  1. SINGULAIR [Suspect]
     Indication: BRONCHITIS
     Route: 048
     Dates: start: 20041126, end: 20041126
  2. NOSCAPINE [Concomitant]
     Route: 048
     Dates: start: 20041126
  3. HOMEOPATHIC MEDICATIONS (UNSPECIFIED) [Concomitant]
     Route: 048
     Dates: start: 20041126

REACTIONS (5)
  - AGITATION [None]
  - DIABETES MELLITUS [None]
  - PRESCRIBED OVERDOSE [None]
  - RESTLESSNESS [None]
  - TACHYCARDIA [None]
